FAERS Safety Report 11991418 (Version 1)
Quarter: 2016Q1

REPORT INFORMATION
  Report Type: Spontaneous
  Country: US (occurrence: US)
  Receive Date: 20160203
  Receipt Date: 20160203
  Transmission Date: 20160526
  Serious: No
  Sender: FDA-Public Use
  Company Number: US-JNJFOC-20151224274

PATIENT
  Sex: Female

DRUGS (2)
  1. HALDOL [Suspect]
     Active Substance: HALOPERIDOL
     Indication: AGITATION
     Route: 065
  2. HALDOL [Suspect]
     Active Substance: HALOPERIDOL
     Indication: FEAR
     Route: 065

REACTIONS (2)
  - Hypersomnia [Unknown]
  - Incontinence [Not Recovered/Not Resolved]
